FAERS Safety Report 9438296 (Version 1)
Quarter: 2013Q3

REPORT INFORMATION
  Report Type: Spontaneous
  Country: US (occurrence: None)
  Receive Date: 20130802
  Receipt Date: 20130802
  Transmission Date: 20140515
  Serious: Yes (Other)
  Sender: FDA-Public Use
  Company Number: None

PATIENT
  Age: 63 Year
  Sex: Female
  Weight: 74.84 kg

DRUGS (2)
  1. AMLODIPINE [Suspect]
     Indication: HYPERTENSION
     Dosage: 2.5 MG PER DAY PO
     Route: 048
     Dates: start: 20130724, end: 20130726
  2. TEGRETOL [Concomitant]

REACTIONS (3)
  - Fatigue [None]
  - Sleep disorder [None]
  - Anxiety [None]
